FAERS Safety Report 16911375 (Version 1)
Quarter: 2019Q4

REPORT INFORMATION
  Report Type: Spontaneous
  Country: SI (occurrence: SI)
  Receive Date: 20191013
  Receipt Date: 20191013
  Transmission Date: 20200122
  Serious: Yes (Hospitalization)
  Sender: FDA-Public Use
  Company Number: SI-DENTSPLY-2019SCDP000547

PATIENT
  Age: 41 Year
  Sex: Male

DRUGS (2)
  1. XYLOCAINE [Suspect]
     Active Substance: LIDOCAINE HYDROCHLORIDE
     Indication: LOCAL ANAESTHESIA
     Dosage: 5 MILLILITER, TOTAL
     Route: 003
  2. ANALGIN [METAMIZOLE SODIUM MONOHYDRATE] [Suspect]
     Active Substance: DIPYRONE
     Indication: POSTOPERATIVE ANALGESIA
     Dosage: 2500 MILLIGRAM, TOTAL
     Route: 042

REACTIONS (6)
  - Hypersensitivity [Recovered/Resolved]
  - Anaphylactic reaction [Recovered/Resolved]
  - Urticaria [Recovered/Resolved]
  - Mouth swelling [Recovered/Resolved]
  - Swelling face [Recovered/Resolved]
  - Pruritus [Recovered/Resolved]

NARRATIVE: CASE EVENT DATE: 20190919
